FAERS Safety Report 12770622 (Version 4)
Quarter: 2016Q4

REPORT INFORMATION
  Report Type: Report from Study
  Country: DE (occurrence: DE)
  Receive Date: 20160922
  Receipt Date: 20161115
  Transmission Date: 20170207
  Serious: Yes (Hospitalization)
  Sender: FDA-Public Use
  Company Number: DE-PFIZER INC-2016428509

PATIENT
  Age: 10 Month
  Sex: Male
  Weight: 16.4 kg

DRUGS (6)
  1. BENEFIX [Suspect]
     Active Substance: COAGULATION FACTOR IX RECOMBINANT HUMAN\ISOPROPYL ALCOHOL
     Indication: FACTOR IX DEFICIENCY
     Dosage: 500 IU, 2-3 X WEEKLY
     Dates: start: 20160627, end: 20160831
  2. TOPIRAMAT [Concomitant]
     Active Substance: TOPIRAMATE
     Indication: SEIZURE
     Dosage: 25 MG, 2X/DAY
     Route: 048
     Dates: start: 20160901
  3. TRANEXAMIC ACID. [Concomitant]
     Active Substance: TRANEXAMIC ACID
     Dosage: UNK
  4. LEVETIRACETAM. [Concomitant]
     Active Substance: LEVETIRACETAM
     Indication: SEIZURE
     Dosage: 450 MG, 2X/DAY
     Route: 048
     Dates: start: 201608
  5. BENEFIX [Suspect]
     Active Substance: COAGULATION FACTOR IX RECOMBINANT HUMAN\ISOPROPYL ALCOHOL
     Dosage: 250 IU, 3 TIMES A WEEK
     Dates: start: 20160627, end: 20160831
  6. CLOBAZAM [Concomitant]
     Active Substance: CLOBAZAM
     Indication: SEIZURE
     Dosage: 2.5 MG, 2X/DAY
     Route: 048
     Dates: start: 20160901

REACTIONS (3)
  - Factor IX inhibition [Not Recovered/Not Resolved]
  - Haemorrhagic diathesis [Unknown]
  - Soft tissue haemorrhage [Unknown]

NARRATIVE: CASE EVENT DATE: 20160831
